FAERS Safety Report 9988868 (Version 4)
Quarter: 2014Q4

REPORT INFORMATION
  Report Type: Spontaneous
  Country: US (occurrence: US)
  Receive Date: 20140310
  Receipt Date: 20141215
  Transmission Date: 20150529
  Serious: Yes (Death, Hospitalization, Other)
  Sender: FDA-Public Use
  Company Number: US-009507513-1403USA003794

PATIENT
  Sex: Female
  Weight: 67.57 kg

DRUGS (4)
  1. AMARYL [Concomitant]
     Active Substance: GLIMEPIRIDE
     Indication: TYPE 2 DIABETES MELLITUS
     Dosage: 2 MG, QD
     Route: 048
     Dates: start: 20070703
  2. JANUVIA [Suspect]
     Active Substance: SITAGLIPTIN PHOSPHATE
     Indication: TYPE 2 DIABETES MELLITUS
     Dosage: 50 MG, QD
     Route: 048
     Dates: start: 20070703, end: 20081001
  3. BYETTA [Suspect]
     Active Substance: EXENATIDE
     Indication: TYPE 2 DIABETES MELLITUS
     Dosage: 5 MICROGRAM, BID
     Dates: start: 20070420, end: 20070723
  4. METFORMIN [Concomitant]
     Active Substance: METFORMIN HYDROCHLORIDE
     Indication: TYPE 2 DIABETES MELLITUS
     Dosage: 1000 MG, BID
     Route: 048
     Dates: start: 20070703

REACTIONS (18)
  - Bile duct obstruction [Unknown]
  - Joint dislocation [Unknown]
  - Chronic kidney disease [Not Recovered/Not Resolved]
  - Dysphagia [Unknown]
  - Osteoarthritis [Unknown]
  - Joint surgery [Unknown]
  - Anaemia of chronic disease [Unknown]
  - Pancreatic carcinoma [Fatal]
  - Urinary tract infection [Unknown]
  - Uterine leiomyoma [Unknown]
  - Constipation [Unknown]
  - Bile duct stent insertion [Unknown]
  - Urinary tract infection [Unknown]
  - Shoulder arthroplasty [Unknown]
  - Lethargy [Unknown]
  - Decreased appetite [Unknown]
  - Drug ineffective [Unknown]
  - Upper limb fracture [Unknown]

NARRATIVE: CASE EVENT DATE: 20070810
